FAERS Safety Report 5596210-0 (Version None)
Quarter: 2008Q1

REPORT INFORMATION
  Report Type: 
  Country: None (occurrence: None)
  Receive Date: 20080118
  Receipt Date: 20080108
  Transmission Date: 20080703
  Serious: Yes (Other)
  Sender: FDA-Public Use
  Company Number: ES-ABBOTT-08P-144-0432773-00

PATIENT
  Age: 5 Year
  Sex: Male

DRUGS (2)
  1. DEPAKENE [Suspect]
     Indication: PETIT MAL EPILEPSY
  2. DEPAKENE [Suspect]

REACTIONS (3)
  - DRUG INEFFECTIVE [None]
  - DRUG LEVEL DECREASED [None]
  - PETIT MAL EPILEPSY [None]
